FAERS Safety Report 6652453-6 (Version None)
Quarter: 2010Q1

REPORT INFORMATION
  Report Type: 
  Country: None (occurrence: None)
  Receive Date: 20100323
  Receipt Date: 20100310
  Transmission Date: 20100710
  Serious: Yes (Hospitalization)
  Sender: FDA-Public Use
  Company Number: 230447J10BRA

PATIENT
  Age: 37 Year
  Sex: Female

DRUGS (6)
  1. REBIF [Suspect]
     Indication: RELAPSING-REMITTING MULTIPLE SCLEROSIS
     Dosage: 22 MCG, 3 IN 1 WEEKS
     Dates: start: 20080520
  2. AMATO (TOPIRAMATE) [Concomitant]
  3. SPIDUFEN (IBUPROFEN ARGININE) [Concomitant]
  4. FLANAX (NAPROXEN SODIUM) [Concomitant]
  5. PAMELOR [Concomitant]
  6. RIVOTRIL (CLONAZEPAM) [Concomitant]

REACTIONS (9)
  - CENTRAL NERVOUS SYSTEM INFLAMMATION [None]
  - FATIGUE [None]
  - FEELING OF DESPAIR [None]
  - HEADACHE [None]
  - HYPOKINESIA [None]
  - MUSCLE TWITCHING [None]
  - MUSCULAR WEAKNESS [None]
  - NERVOUSNESS [None]
  - PAIN [None]
